FAERS Safety Report 9475221 (Version 1)
Quarter: 2013Q3

REPORT INFORMATION
  Report Type: Spontaneous
  Country: US (occurrence: US)
  Receive Date: 20130825
  Receipt Date: 20130825
  Transmission Date: 20140515
  Serious: Yes (Other)
  Sender: FDA-Public Use
  Company Number: US-JNJFOC-20130806782

PATIENT
  Age: 46 Year
  Sex: Female
  Weight: 72.58 kg

DRUGS (3)
  1. ROGAINE EXTRA STRENGTH [Suspect]
     Route: 061
  2. ROGAINE EXTRA STRENGTH [Suspect]
     Indication: ALOPECIA
     Dosage: A CAPFUL
     Route: 061
     Dates: start: 20130805, end: 20130806
  3. CYMBALTA [Concomitant]
     Indication: ANXIETY
     Dosage: ABOUT 9 MONTHS ??STARTED MID NOVEMBER
     Route: 065

REACTIONS (3)
  - Cardiac disorder [Recovered/Resolved]
  - Dizziness [Recovered/Resolved]
  - Incorrect dose administered [Recovered/Resolved]
